FAERS Safety Report 22061457 (Version 2)
Quarter: 2023Q1

REPORT INFORMATION
  Report Type: Spontaneous
  Country: CA (occurrence: CA)
  Receive Date: 20230304
  Receipt Date: 20230308
  Transmission Date: 20230418
  Serious: Yes (Other)
  Sender: FDA-Public Use
  Company Number: CA-ABBVIE-4150747

PATIENT
  Age: 46 Year
  Sex: Male

DRUGS (2)
  1. HUMIRA [Suspect]
     Active Substance: ADALIMUMAB
     Indication: Product used for unknown indication
     Route: 058
  2. ABRILADA [Suspect]
     Active Substance: ADALIMUMAB-AFZB
     Indication: Crohn^s disease
     Dosage: SINGLE DOSE VIAL
     Route: 058

REACTIONS (7)
  - Rectal haemorrhage [Unknown]
  - Peripheral swelling [Unknown]
  - Product dose omission issue [Unknown]
  - Haemorrhoids [Unknown]
  - Product substitution [Unknown]
  - Arthralgia [Unknown]
  - Off label use [Unknown]
